FAERS Safety Report 11031083 (Version 1)
Quarter: 2015Q2

REPORT INFORMATION
  Report Type: Spontaneous
  Country: US (occurrence: US)
  Receive Date: 20150415
  Receipt Date: 20150415
  Transmission Date: 20150821
  Serious: No
  Sender: FDA-Public Use
  Company Number: US-ASTRAZENECA-2015SE17104

PATIENT
  Age: 78 Year
  Sex: Female

DRUGS (5)
  1. ALEVE [Concomitant]
     Active Substance: NAPROXEN SODIUM
     Dosage: UNKNOWN
  2. LEVOXYL [Concomitant]
     Active Substance: LEVOTHYROXINE SODIUM
     Dosage: UNKNOWN
  3. COD LIVER OIL [Concomitant]
     Active Substance: COD LIVER OIL
     Dosage: UNKNOWN
  4. CENTRUM SILVER [Concomitant]
     Active Substance: VITAMINS
     Dosage: UNKNOWN
  5. PRILOSEC OTC [Suspect]
     Active Substance: OMEPRAZOLE MAGNESIUM
     Route: 048
     Dates: start: 20150119, end: 20150208

REACTIONS (2)
  - Incorrect drug administration duration [Unknown]
  - Dyspepsia [Recovered/Resolved]
